FAERS Safety Report 9285121 (Version 1)
Quarter: 2013Q2

REPORT INFORMATION
  Report Type: Spontaneous
  Country: DE (occurrence: DE)
  Receive Date: 20130513
  Receipt Date: 20130513
  Transmission Date: 20140414
  Serious: Yes (Other)
  Sender: FDA-Public Use
  Company Number: DE-MYLANLABS-2013S1009257

PATIENT
  Age: 32 Year
  Sex: Female
  Weight: 86 kg

DRUGS (7)
  1. IBUPROFEN [Suspect]
     Indication: ANKYLOSING SPONDYLITIS
     Dosage: 300 [MG/D ]/ PRECONCEPTIONAL 1200MG/D
     Route: 048
     Dates: start: 20120301, end: 20120925
  2. IBUPROFEN [Suspect]
     Indication: ANKYLOSING SPONDYLITIS
  3. DAIVOBET [Concomitant]
     Indication: PSORIASIS
     Dosage: SMALL-AREA
     Route: 003
     Dates: start: 20120201
  4. FOLIO FORTE [Concomitant]
     Indication: PROPHYLAXIS OF NEURAL TUBE DEFECT
     Dosage: 0.8 [MG/D (BIS 0.4) ]/ ALSO PRECONCEPTIONAL
     Route: 048
     Dates: start: 20120201
  5. CLOTRIMAZOLE [Concomitant]
     Indication: VULVOVAGINAL MYCOTIC INFECTION
     Dosage: 20 [MG/D ]
     Route: 067
  6. MIFEGYNE [Concomitant]
     Indication: ABORTION INDUCED
     Route: 048
     Dates: start: 20120925, end: 20120925
  7. CYTOTEC [Concomitant]
     Indication: ABORTION INDUCED
     Route: 067
     Dates: start: 20120925, end: 20120925

REACTIONS (4)
  - Exposure during pregnancy [Recovered/Resolved]
  - Oligohydramnios [Not Recovered/Not Resolved]
  - Placental insufficiency [Not Recovered/Not Resolved]
  - Vaginal haemorrhage [Unknown]
